FAERS Safety Report 7650360-3 (Version None)
Quarter: 2011Q3

REPORT INFORMATION
  Report Type: 
  Country: None (occurrence: None)
  Receive Date: 20110802
  Receipt Date: 20110720
  Transmission Date: 20111222
  Serious: Yes (Hospitalization, Other)
  Sender: FDA-Public Use
  Company Number: US-ASTRAZENECA-2007UW27384

PATIENT
  Age: 41 Year
  Sex: Female
  Weight: 99.8 kg

DRUGS (52)
  1. SEROQUEL [Suspect]
     Dosage: 25MG, 60MG, 100MG, 200MG
     Route: 048
     Dates: start: 20000201, end: 20070801
  2. SEROQUEL [Suspect]
     Dosage: 25MG, 60MG, 100MG, 200MG
     Route: 048
     Dates: start: 20000201, end: 20070801
  3. PROZAC [Concomitant]
     Dates: start: 20010101
  4. TRAZODONE HCL [Concomitant]
     Dates: start: 19970101
  5. ABILIFY [Concomitant]
     Dates: start: 20030101
  6. GEODON [Concomitant]
     Dates: start: 20010101
  7. GEODON [Concomitant]
     Dates: start: 20070920
  8. LEXAPRO [Concomitant]
     Dates: start: 20030101
  9. ALPRAZOLAM [Concomitant]
     Route: 048
     Dates: start: 20030227
  10. METOCLOPRAMIDE [Concomitant]
     Dates: start: 20030225
  11. TEMAZEPAM [Concomitant]
     Route: 048
     Dates: start: 20050222
  12. CLONAZEPAM [Concomitant]
     Route: 048
     Dates: start: 20050824
  13. TRAZODONE HCL [Concomitant]
     Route: 048
     Dates: start: 20051118
  14. EFFEXOR [Concomitant]
     Dates: start: 20010101
  15. EFFEXOR [Concomitant]
     Dates: start: 20010101
  16. GEODON [Concomitant]
     Dates: start: 20010101
  17. ASACOL [Concomitant]
     Route: 048
     Dates: start: 20040223
  18. ZYPREXA [Concomitant]
     Route: 048
     Dates: start: 19980830
  19. EFFEXOR [Concomitant]
     Dates: start: 20010101
  20. ABILIFY [Concomitant]
     Dates: start: 20030911
  21. DEPAKOTE [Concomitant]
     Indication: MOOD SWINGS
     Dates: start: 19970101
  22. RANITIDINE [Concomitant]
     Route: 048
     Dates: start: 20030911
  23. PHENERGAN HCL [Concomitant]
     Dates: start: 20030506
  24. LEVAQUIN [Concomitant]
     Dates: start: 20030708
  25. PRILOSEC [Concomitant]
     Route: 048
     Dates: start: 20051001
  26. ZYPREXA [Concomitant]
     Dates: start: 20010101
  27. LAMICTAL [Concomitant]
     Dosage: 12.5 MG-1000 MG DAILY
     Route: 048
     Dates: start: 20030911
  28. LYRICA [Concomitant]
     Route: 048
     Dates: start: 20071017
  29. REQUIP [Concomitant]
     Route: 048
     Dates: start: 20080205
  30. NOVOLIN R [Concomitant]
     Dates: start: 20050223
  31. SEROQUEL [Suspect]
     Indication: BIPOLAR DISORDER
     Dosage: 50 MG-300 MG DAILY
     Route: 048
     Dates: start: 19991118
  32. EFFEXOR [Concomitant]
     Indication: ANXIETY
     Dosage: 37.5 MG-150 MG DAILY
     Route: 048
     Dates: start: 19980830
  33. EFFEXOR [Concomitant]
     Indication: IMPULSE-CONTROL DISORDER
     Dosage: 37.5 MG-150 MG DAILY
     Route: 048
     Dates: start: 19980830
  34. AVANDIA [Concomitant]
     Route: 048
     Dates: start: 20040224
  35. SEROQUEL [Suspect]
     Indication: INSOMNIA
     Dosage: 50 MG-300 MG DAILY
     Route: 048
     Dates: start: 19991118
  36. TRAZODONE HCL [Concomitant]
     Dates: start: 19900101
  37. WELLBUTRIN SR [Concomitant]
     Dates: start: 20010101
  38. SYNTHROID [Concomitant]
     Indication: HYPERTHYROIDISM
     Dates: start: 19980830
  39. AMBIEN [Concomitant]
     Route: 048
     Dates: start: 20050930
  40. EFFEXOR [Concomitant]
     Indication: DEPRESSION
     Dosage: 37.5 MG-150 MG DAILY
     Route: 048
     Dates: start: 19980830
  41. DEPAKOTE [Concomitant]
     Dosage: STRENGTH-250 MG-500 MG DOSE-500 MG AT NIGHT
     Route: 048
     Dates: start: 20010906
  42. DILANTIN [Concomitant]
     Indication: CONVULSION
     Route: 048
     Dates: start: 20051003
  43. REMERON [Concomitant]
     Route: 048
     Dates: start: 19990920
  44. PREMARIN [Concomitant]
     Route: 048
     Dates: start: 20030303
  45. PROZAC [Concomitant]
     Dosage: 10 MG-60 MG DAILY
     Route: 048
     Dates: start: 19980830
  46. PROZAC [Concomitant]
     Dates: start: 20010101
  47. GEODON [Concomitant]
     Dosage: STRENGTH-20 MG-40 MG
     Route: 048
     Dates: start: 20030303
  48. RISPERDAL [Concomitant]
     Dates: start: 20020101
  49. PAXIL [Concomitant]
     Dates: start: 19970101
  50. ACTOS [Concomitant]
     Dates: start: 20030506
  51. DOXEPIN [Concomitant]
     Indication: INSOMNIA
     Route: 048
     Dates: start: 20020218
  52. PROTONIX [Concomitant]
     Route: 048
     Dates: start: 20050223

REACTIONS (5)
  - TYPE 2 DIABETES MELLITUS [None]
  - CONVULSION [None]
  - OBESITY [None]
  - CARDIOVASCULAR DISORDER [None]
  - HYPOGLYCAEMIA [None]
